FAERS Safety Report 10512550 (Version 2)
Quarter: 2014Q4

REPORT INFORMATION
  Report Type: Report from Study
  Country: CA (occurrence: CA)
  Receive Date: 20141011
  Receipt Date: 20141011
  Transmission Date: 20150528
  Serious: Yes (Death)
  Sender: FDA-Public Use
  Company Number: PHHY2013CA128474

PATIENT
  Age: 68 Year
  Sex: Male

DRUGS (1)
  1. ZOMETA [Suspect]
     Active Substance: ZOLEDRONIC ACID
     Indication: PLASMA CELL MYELOMA
     Dosage: 4 MG, ONCE EVERY 4 WEEKS
     Route: 042
     Dates: start: 20131023

REACTIONS (2)
  - Death [Fatal]
  - Mobility decreased [Unknown]

NARRATIVE: CASE EVENT DATE: 20131110
